FAERS Safety Report 20343028 (Version 1)
Quarter: 2022Q1

REPORT INFORMATION
  Report Type: Spontaneous
  Country: US (occurrence: US)
  Receive Date: 20220117
  Receipt Date: 20220117
  Transmission Date: 20220423
  Serious: No
  Sender: FDA-Public Use
  Company Number: US-PERRIGO-21US029606

PATIENT
  Sex: Female
  Weight: 71.655 kg

DRUGS (1)
  1. CICLOPIROX OLAMINE [Suspect]
     Active Substance: CICLOPIROX OLAMINE
     Indication: Fungal infection
     Dosage: UNKNOWN, QD 3-4 TIMES A WEEK PRN
     Route: 061

REACTIONS (2)
  - Expired product administered [Recovered/Resolved]
  - Inappropriate schedule of product administration [Not Recovered/Not Resolved]
